FAERS Safety Report 8887497 (Version 1)
Quarter: 2012Q4

REPORT INFORMATION
  Report Type: Spontaneous
  Country: US (occurrence: None)
  Receive Date: 20121101
  Receipt Date: 20121101
  Transmission Date: 20130627
  Serious: Yes (Hospitalization)
  Sender: FDA-Public Use
  Company Number: None

PATIENT
  Age: 62 Year
  Sex: Male
  Weight: 92.8 kg

DRUGS (11)
  1. INTEGRILIN [Suspect]
     Dosage: 75MG/100ML ONCE IV
RECENT
     Route: 042
  2. SYMBICORT [Concomitant]
  3. ALBUTEROL [Concomitant]
  4. LOSARTAN/HCTZ 100/25 [Concomitant]
  5. NAPROXEN [Concomitant]
  6. VIT D3 [Concomitant]
  7. VIT C [Concomitant]
  8. FISH OIL [Concomitant]
  9. IRON [Concomitant]
  10. LIPITOR [Concomitant]
  11. PLAVIX [Concomitant]

REACTIONS (4)
  - Neck pain [None]
  - Chills [None]
  - Pain [None]
  - Anaphylactic reaction [None]
